FAERS Safety Report 9280050 (Version 1)
Quarter: 2013Q2

REPORT INFORMATION
  Report Type: Spontaneous
  Country: US (occurrence: None)
  Receive Date: 20130507
  Receipt Date: 20130507
  Transmission Date: 20140414
  Serious: Yes (Other)
  Sender: FDA-Public Use
  Company Number: None

PATIENT
  Age: 10 Year
  Sex: Male
  Weight: 26.76 kg

DRUGS (1)
  1. METHYLPHENIDATE [Suspect]

REACTIONS (1)
  - Aggression [None]
